FAERS Safety Report 24309435 (Version 1)
Quarter: 2024Q3

REPORT INFORMATION
  Report Type: Spontaneous
  Country: US (occurrence: US)
  Receive Date: 20240911
  Receipt Date: 20240911
  Transmission Date: 20241017
  Serious: No
  Sender: APOTEX
  Company Number: US-APOTEX-2024AP010046

PATIENT
  Age: 6 Year
  Sex: Female

DRUGS (1)
  1. IMIQUIMOD [Suspect]
     Active Substance: IMIQUIMOD
     Indication: Basal cell naevus syndrome
     Dosage: UNK, 4 DOSES
     Route: 065

REACTIONS (2)
  - Off label use [Unknown]
  - Influenza like illness [Unknown]
